FAERS Safety Report 10018903 (Version 2)
Quarter: 2014Q1

REPORT INFORMATION
  Report Type: Spontaneous
  Country: FR (occurrence: FR)
  Receive Date: 20140318
  Receipt Date: 20140318
  Transmission Date: 20141002
  Serious: No
  Sender: FDA-Public Use
  Company Number: FR-TEVA-412423ISR

PATIENT
  Age: 79 Year
  Sex: Female

DRUGS (15)
  1. FUROSEMIDE TEVA 40MG [Suspect]
     Dosage: 40 MILLIGRAM DAILY; FUROSEMIDE TREATMENT STARTED MANY MONTHS AGO
     Route: 048
  2. TAHOR [Concomitant]
  3. PROCORALAN [Concomitant]
  4. PLAVIX [Concomitant]
  5. KARDEGIC [Concomitant]
  6. DIFLUREX [Concomitant]
  7. TRIVASTAL [Concomitant]
  8. CARDENSIEL [Concomitant]
  9. ADANCOR [Concomitant]
  10. AMLOR [Concomitant]
  11. FORLAX [Concomitant]
  12. DAFALGAN [Concomitant]
  13. DEBRIDAT [Concomitant]
  14. PREVISCAN [Concomitant]
  15. ACTISKENAN [Concomitant]

REACTIONS (3)
  - Somnolence [Recovered/Resolved]
  - Somnolence [Recovered/Resolved]
  - Product substitution issue [Unknown]
